FAERS Safety Report 22218735 (Version 1)
Quarter: 2023Q2

REPORT INFORMATION
  Report Type: Spontaneous
  Country: FR (occurrence: FR)
  Receive Date: 20230417
  Receipt Date: 20230417
  Transmission Date: 20230722
  Serious: Yes (Hospitalization)
  Sender: FDA-Public Use
  Company Number: None

PATIENT
  Age: 77 Year
  Sex: Male
  Weight: 83 kg

DRUGS (3)
  1. DARZALEX [Suspect]
     Active Substance: DARATUMUMAB
     Indication: C3 glomerulopathy
     Dosage: DOSAGE NOT KNOWN
     Route: 042
     Dates: start: 20230303, end: 20230317
  2. VELCADE [Suspect]
     Active Substance: BORTEZOMIB
     Indication: C3 glomerulopathy
     Dosage: DOSAGE NOT KNOWN
     Route: 042
     Dates: start: 20230303, end: 20230317
  3. SOLIRIS [Suspect]
     Active Substance: ECULIZUMAB
     Indication: C3 glomerulopathy
     Dosage: POSOLOGIE NON CONNUE
     Route: 042
     Dates: start: 20230303, end: 20230317

REACTIONS (3)
  - Anaemia [Recovered/Resolved]
  - Upper gastrointestinal haemorrhage [Recovering/Resolving]
  - Melaena [Not Recovered/Not Resolved]

NARRATIVE: CASE EVENT DATE: 20230317
